FAERS Safety Report 7997505-3 (Version None)
Quarter: 2011Q4

REPORT INFORMATION
  Report Type: 
  Country: None (occurrence: None)
  Receive Date: 20111221
  Receipt Date: 20111221
  Transmission Date: 20120403
  Serious: Yes (Other)
  Sender: FDA-Public Use
  Company Number: None

PATIENT
  Age: 47 Year
  Sex: Male
  Weight: 104.32 kg

DRUGS (1)
  1. LEVAQUIN [Suspect]
     Indication: UPPER RESPIRATORY TRACT INFECTION
     Dosage: 1
     Route: 048
     Dates: start: 20090201, end: 20090202

REACTIONS (8)
  - HEART RATE ABNORMAL [None]
  - ATRIAL FIBRILLATION [None]
  - OTOTOXICITY [None]
  - BLOOD PRESSURE ABNORMAL [None]
  - NERVOUS SYSTEM DISORDER [None]
  - TINNITUS [None]
  - GASTROINTESTINAL DISORDER [None]
  - PRESYNCOPE [None]
